FAERS Safety Report 4889674-9 (Version None)
Quarter: 2006Q1

REPORT INFORMATION
  Report Type: 
  Country: None (occurrence: None)
  Receive Date: 20060124
  Receipt Date: 20051020
  Transmission Date: 20060701
  Serious: Yes (Death, Hospitalization, Other)
  Sender: FDA-Public Use
  Company Number: ES-AMGEN-UK155062

PATIENT
  Age: 59 Year
  Sex: Male
  Weight: 90 kg

DRUGS (33)
  1. NEUPOGEN [Suspect]
     Indication: NEUTROPENIA
     Route: 042
     Dates: start: 20051010, end: 20051106
  2. ALBUMIN (HUMAN) [Concomitant]
     Route: 042
     Dates: start: 20051001
  3. PANTOPRAZOLE [Concomitant]
     Route: 042
  4. FUROSEMIDE [Concomitant]
     Route: 042
  5. LORAZEPAM [Concomitant]
     Route: 065
  6. POTASSIUM [Concomitant]
     Route: 065
  7. TAMSULOSIN HCL [Concomitant]
     Route: 065
  8. SODIUM BICARBONATE [Concomitant]
     Route: 065
  9. SODIUM CHLORIDE [Concomitant]
     Route: 065
  10. METOCLOPRAMIDE [Concomitant]
     Route: 042
  11. ONDANSETRON [Concomitant]
     Route: 042
  12. LOPERAMIDE [Concomitant]
     Route: 065
  13. PARACETAMOL [Concomitant]
     Route: 042
  14. ACYCLOVIR [Concomitant]
     Route: 042
  15. CIPROFLOXACIN [Concomitant]
     Route: 065
  16. CASPOFUNGIN [Concomitant]
     Route: 042
  17. FLUCONAZOLE [Concomitant]
     Route: 042
  18. GLUCOSE [Concomitant]
     Route: 065
  19. OMEPRAZOLE [Concomitant]
     Route: 042
  20. AMIKACIN SULFATE [Concomitant]
     Route: 042
     Dates: start: 20051001
  21. DICLOFENAC SODIUM [Concomitant]
     Route: 042
  22. CEFOTAXIME [Concomitant]
     Route: 042
     Dates: start: 20051001
  23. CILASTATIN SODIUM W/IMIPENEM [Concomitant]
     Route: 042
  24. DIPHENHYDRAMINE HCL [Concomitant]
     Route: 042
  25. HEPARIN [Concomitant]
     Route: 058
  26. MESNA [Concomitant]
     Route: 042
  27. PHYTOMENADION [Concomitant]
     Route: 042
  28. MEROPENEM [Concomitant]
     Route: 042
     Dates: start: 20051001
  29. LAMIVUDINE [Concomitant]
     Route: 065
  30. INSULIN [Concomitant]
     Route: 058
  31. BUSULFAN [Concomitant]
     Dates: start: 20051001
  32. CYCLOPHOSPHAMIDE [Concomitant]
     Dates: start: 20051001
  33. AMPHOTERICIN B [Concomitant]

REACTIONS (22)
  - ACUTE RESPIRATORY DISTRESS SYNDROME [None]
  - BLOOD CULTURE POSITIVE [None]
  - BLOOD STEM CELL TRANSPLANT FAILURE [None]
  - CAPILLARY LEAK SYNDROME [None]
  - CARDIAC ARREST [None]
  - ECCHYMOSIS [None]
  - ERYTHEMA [None]
  - GENERALISED OEDEMA [None]
  - HAEMORRHAGIC DIATHESIS [None]
  - HEPATOMEGALY [None]
  - HYPOALBUMINAEMIA [None]
  - JAUNDICE [None]
  - MUCOSAL INFLAMMATION [None]
  - MULTI-ORGAN FAILURE [None]
  - PANCYTOPENIA [None]
  - PNEUMONIA [None]
  - RENAL FAILURE [None]
  - RESPIRATORY FAILURE [None]
  - SEPTIC SHOCK [None]
  - THROMBOCYTOPENIA [None]
  - VENOOCCLUSIVE LIVER DISEASE [None]
  - WEIGHT INCREASED [None]
